FAERS Safety Report 21962380 (Version 2)
Quarter: 2024Q1

REPORT INFORMATION
  Report Type: Report from Study
  Country: US (occurrence: US)
  Receive Date: 20230207
  Receipt Date: 20240207
  Transmission Date: 20240409
  Serious: No
  Sender: FDA-Public Use
  Company Number: US-ORG100014127-2022000513

PATIENT
  Age: 64 Year
  Sex: Male

DRUGS (6)
  1. LYSODREN [Suspect]
     Active Substance: MITOTANE
     Indication: Adrenal gland cancer
     Dosage: 01 TABLET TWICE DAILY FOR 2 WEEKS, THEN INCREASE TO 02 TABLETS TWICE DAILY
     Route: 048
     Dates: start: 20220328
  2. LYSODREN [Suspect]
     Active Substance: MITOTANE
     Indication: Adrenal gland cancer
     Route: 048
  3. LYSODREN [Suspect]
     Active Substance: MITOTANE
     Indication: Adrenal gland cancer
     Dosage: 04 TABLETS TWICE DAILY
     Route: 048
  4. Eliquis tab 5 mg [Concomitant]
     Indication: Product used for unknown indication
  5. Melatonin tab 5 mg [Concomitant]
     Indication: Product used for unknown indication
  6. KEYTRUDA INJ 100MG/4M [Concomitant]
     Indication: Product used for unknown indication

REACTIONS (2)
  - Peripheral swelling [Not Recovered/Not Resolved]
  - Fatigue [Not Recovered/Not Resolved]

NARRATIVE: CASE EVENT DATE: 20220328
